FAERS Safety Report 7822920-8 (Version None)
Quarter: 2011Q4

REPORT INFORMATION
  Report Type: 
  Country: None (occurrence: None)
  Receive Date: 20111018
  Receipt Date: 20110517
  Transmission Date: 20120403
  Serious: No
  Sender: FDA-Public Use
  Company Number: US-ASTRAZENECA-2011SE29936

PATIENT
  Age: 34 Year
  Sex: Male

DRUGS (1)
  1. SYMBICORT [Suspect]
     Route: 055
     Dates: start: 20110401, end: 20110501

REACTIONS (3)
  - PAIN [None]
  - PARAESTHESIA [None]
  - HYPOAESTHESIA [None]
